FAERS Safety Report 9223054 (Version 4)
Quarter: 2013Q2

REPORT INFORMATION
  Report Type: Spontaneous
  Country: DE (occurrence: JP)
  Receive Date: 20130410
  Receipt Date: 20130613
  Transmission Date: 20140414
  Serious: Yes (Hospitalization)
  Sender: FDA-Public Use
  Company Number: JP-FRI-1000044147

PATIENT
  Age: 80 Year
  Sex: Male

DRUGS (10)
  1. MEMANTINE [Suspect]
     Indication: DEMENTIA ALZHEIMER^S TYPE
     Dosage: 5 MG
     Route: 048
     Dates: start: 20130202, end: 20130301
  2. MEMANTINE [Suspect]
     Indication: DEMENTIA ALZHEIMER^S TYPE
     Dosage: 10 MG
     Route: 048
     Dates: start: 20130302, end: 20130401
  3. ARICEPT [Suspect]
     Dosage: 5 MG
     Route: 048
     Dates: start: 20130302, end: 20130327
  4. EXELON PATCH [Concomitant]
     Dosage: 4.5 MG
     Route: 062
     Dates: start: 20121109, end: 20121206
  5. EXELON PATCH [Concomitant]
     Dosage: 9 MG
     Route: 062
     Dates: start: 20121207, end: 20121227
  6. EXELON PATCH [Concomitant]
     Dosage: 13.5 MG
     Route: 062
     Dates: start: 20121228, end: 20130201
  7. EXELON PATCH [Concomitant]
     Dosage: 18 MG
     Route: 062
     Dates: start: 20130202, end: 20130302
  8. JUVELA [Concomitant]
     Dosage: 100 MG
     Route: 048
     Dates: start: 20121010, end: 20130401
  9. YOKUKANSAN [Concomitant]
     Dosage: 5 G
     Route: 048
     Dates: start: 20121010, end: 20130401
  10. GINKGO BILOBA EXTRACT [Concomitant]
     Dosage: 2 DF
     Route: 048
     Dates: start: 20121010, end: 20130401

REACTIONS (1)
  - Pancytopenia [Not Recovered/Not Resolved]
